FAERS Safety Report 9966507 (Version 1)
Quarter: 2014Q1

REPORT INFORMATION
  Report Type: Report from Study
  Country: US (occurrence: US)
  Receive Date: 20140305
  Receipt Date: 20140305
  Transmission Date: 20141002
  Serious: Yes (Hospitalization)
  Sender: FDA-Public Use
  Company Number: US-ABBVIE-13P-163-1120389-00

PATIENT
  Age: 47 Year
  Sex: Female
  Weight: 62.65 kg

DRUGS (3)
  1. HUMIRA [Suspect]
     Indication: CROHN^S DISEASE
     Dates: start: 2011, end: 2012
  2. HUMIRA [Suspect]
     Dates: start: 201306
  3. VITAMINS [Concomitant]
     Indication: VITAMIN SUPPLEMENTATION

REACTIONS (5)
  - Crohn^s disease [Recovered/Resolved]
  - Rash [Not Recovered/Not Resolved]
  - Dehydration [Recovered/Resolved]
  - Vertebral osteophyte [Not Recovered/Not Resolved]
  - Rash [Not Recovered/Not Resolved]
